FAERS Safety Report 19670367 (Version 1)
Quarter: 2021Q3

REPORT INFORMATION
  Report Type: Spontaneous
  Country: US (occurrence: US)
  Receive Date: 20210806
  Receipt Date: 20210806
  Transmission Date: 20211014
  Serious: Yes (Other)
  Sender: FDA-Public Use
  Company Number: US-SAOL THERAPEUTICS-2020SAO00482

PATIENT
  Sex: Female
  Weight: 43.54 kg

DRUGS (1)
  1. LIORESAL [Suspect]
     Active Substance: BACLOFEN
     Dosage: 1977 ?G, \DAY
     Route: 037
     Dates: end: 20201028

REACTIONS (1)
  - Implant site infection [Recovered/Resolved]
